FAERS Safety Report 14204720 (Version 4)
Quarter: 2017Q4

REPORT INFORMATION
  Report Type: Spontaneous
  Country: JP (occurrence: JP)
  Receive Date: 20171120
  Receipt Date: 20171222
  Transmission Date: 20180321
  Serious: Yes (Other)
  Sender: FDA-Public Use
  Company Number: JP-GLAXOSMITHKLINE-JP2017JPN174973

PATIENT
  Age: 9 Year
  Sex: Male
  Weight: 36 kg

DRUGS (12)
  1. CARBOCISTEINE [Concomitant]
     Active Substance: CARBOCYSTEINE
     Indication: SINUSITIS
     Dosage: UNK
  2. ALLELOCK [Concomitant]
     Active Substance: OLOPATADINE HYDROCHLORIDE
     Indication: SINUSITIS
     Dosage: UNK
  3. CLARITH [Concomitant]
     Active Substance: CLARITHROMYCIN
     Indication: SINUSITIS
     Dosage: UNK
  4. PREDONINE [Concomitant]
     Active Substance: PREDNISOLONE
     Dosage: UNK
  5. CLARITH [Concomitant]
     Active Substance: CLARITHROMYCIN
     Indication: RHINITIS
  6. MUCOSOLVAN (AMBROXOL HYDROCHLORIDE) [Concomitant]
     Active Substance: AMBROXOL HYDROCHLORIDE
     Indication: RHINITIS
  7. ALLELOCK [Concomitant]
     Active Substance: OLOPATADINE HYDROCHLORIDE
     Indication: RHINITIS
  8. MONTELUKAST SODIUM. [Concomitant]
     Active Substance: MONTELUKAST SODIUM
     Indication: ASTHMA
     Dosage: UNK
  9. SERETIDE [Suspect]
     Active Substance: FLUTICASONE PROPIONATE\SALMETEROL XINAFOATE
     Dosage: 200 ?G, BID
     Route: 055
  10. CARBOCISTEINE [Concomitant]
     Active Substance: CARBOCYSTEINE
     Indication: RHINITIS
  11. MUCOSOLVAN (AMBROXOL HYDROCHLORIDE) [Concomitant]
     Active Substance: AMBROXOL HYDROCHLORIDE
     Indication: SINUSITIS
     Dosage: UNK
  12. SERETIDE [Suspect]
     Active Substance: FLUTICASONE PROPIONATE\SALMETEROL XINAFOATE
     Indication: ASTHMA PROPHYLAXIS
     Dosage: 100 ?G, BID
     Route: 055
     Dates: start: 20161003

REACTIONS (5)
  - Drug effect incomplete [Unknown]
  - Ear infection fungal [Recovered/Resolved]
  - Prescribed overdose [Unknown]
  - Oral candidiasis [Recovered/Resolved]
  - Product use issue [Unknown]

NARRATIVE: CASE EVENT DATE: 20171113
